FAERS Safety Report 11058911 (Version 1)
Quarter: 2015Q2

REPORT INFORMATION
  Report Type: Spontaneous
  Country: US (occurrence: None)
  Receive Date: 20150422
  Receipt Date: 20150422
  Transmission Date: 20150821
  Serious: No
  Sender: FDA-Public Use
  Company Number: None

PATIENT
  Age: 68 Year
  Sex: Male
  Weight: 115.5 kg

DRUGS (1)
  1. DOCETAXEL. [Suspect]
     Active Substance: DOCETAXEL
     Indication: PAIN
     Route: 042
     Dates: start: 20140630, end: 20140630

REACTIONS (3)
  - Arthralgia [None]
  - Muscle spasms [None]
  - Crying [None]

NARRATIVE: CASE EVENT DATE: 20140630
